FAERS Safety Report 21943692 (Version 1)
Quarter: 2023Q1

REPORT INFORMATION
  Report Type: Spontaneous
  Country: US (occurrence: US)
  Receive Date: 20230202
  Receipt Date: 20230202
  Transmission Date: 20230418
  Serious: Yes (Other)
  Sender: FDA-Public Use
  Company Number: US-JNJFOC-20230153633

PATIENT
  Age: 39 Year
  Sex: Female

DRUGS (1)
  1. BENADRYL [Suspect]
     Active Substance: DIPHENHYDRAMINE HYDROCHLORIDE
     Indication: Eczema
     Route: 065

REACTIONS (4)
  - Myocardial infarction [Unknown]
  - Paralysis [Unknown]
  - Myoclonus [Unknown]
  - Product use in unapproved indication [Unknown]
